FAERS Safety Report 9271090 (Version 2)
Quarter: 2014Q1

REPORT INFORMATION
  Report Type: Spontaneous
  Country: US (occurrence: US)
  Receive Date: 20130506
  Receipt Date: 20140128
  Transmission Date: 20141002
  Serious: Yes (Other)
  Sender: FDA-Public Use
  Company Number: US-BAYER-2013-052938

PATIENT
  Age: 37 Year
  Sex: Female

DRUGS (6)
  1. YAZ [Suspect]
     Dosage: UNK
     Dates: start: 2002, end: 20040104
  2. YAZ [Suspect]
     Dosage: UNK
     Dates: start: 20051010, end: 2007
  3. YASMIN [Suspect]
     Dosage: UNK
     Dates: start: 2002, end: 20040104
  4. YASMIN [Suspect]
     Dosage: UNK
     Dates: start: 20051010, end: 2007
  5. YASMIN [Suspect]
  6. LEXAPRO [Concomitant]
     Dosage: 20 MG DAILY

REACTIONS (4)
  - Cholecystitis [None]
  - Cholecystectomy [None]
  - Pain [None]
  - Injury [None]
